FAERS Safety Report 4673534-2 (Version None)
Quarter: 2005Q2

REPORT INFORMATION
  Report Type: 
  Country: None (occurrence: None)
  Receive Date: 20050523
  Receipt Date: 20050512
  Transmission Date: 20051028
  Serious: Yes (Other)
  Sender: FDA-Public Use
  Company Number: 200510874BWH

PATIENT
  Age: 63 Year
  Sex: Female

DRUGS (4)
  1. AVELOX [Suspect]
     Indication: MYCOBACTERIAL INFECTION
     Dosage: 400 MG, TOTAL DAILY, ORAL
     Route: 048
     Dates: start: 20050429
  2. CORGARD [Concomitant]
  3. ACEON [Concomitant]
  4. QVAR 40 [Concomitant]

REACTIONS (6)
  - ARRHYTHMIA [None]
  - ASTHENIA [None]
  - DYSKINESIA [None]
  - FEELING ABNORMAL [None]
  - NERVOUSNESS [None]
  - PALPITATIONS [None]
